FAERS Safety Report 15330615 (Version 2)
Quarter: 2018Q3

REPORT INFORMATION
  Report Type: Spontaneous
  Country: IT (occurrence: IT)
  Receive Date: 20180829
  Receipt Date: 20180924
  Transmission Date: 20181010
  Serious: Yes (Hospitalization)
  Sender: FDA-Public Use
  Company Number: PHHY2018IT082086

PATIENT
  Age: 47 Year
  Sex: Male

DRUGS (3)
  1. OLANZAPINE. [Suspect]
     Active Substance: OLANZAPINE
     Indication: DRUG ABUSE
     Dosage: 80 MG, TOTAL
     Route: 048
     Dates: start: 20180614, end: 20180614
  2. TRITTICO [Suspect]
     Active Substance: TRAZODONE HYDROCHLORIDE
     Indication: DRUG ABUSE
     Dosage: 20 DF (UG/LIT), TOTAL
     Route: 048
     Dates: start: 20180614, end: 20180614
  3. GABAPENTIN. [Suspect]
     Active Substance: GABAPENTIN
     Indication: DRUG ABUSE
     Dosage: 8 DF (UG/LIT), TOTAL
     Route: 048
     Dates: start: 20180614, end: 20180614

REACTIONS (4)
  - Abdominal pain upper [Recovering/Resolving]
  - Nausea [Recovering/Resolving]
  - Toxicity to various agents [Recovering/Resolving]
  - Drug abuse [Recovering/Resolving]

NARRATIVE: CASE EVENT DATE: 20180614
